FAERS Safety Report 12608295 (Version 1)
Quarter: 2016Q3

REPORT INFORMATION
  Report Type: Report from Study
  Country: NZ (occurrence: NZ)
  Receive Date: 20160729
  Receipt Date: 20160729
  Transmission Date: 20161109
  Serious: Yes (Hospitalization)
  Sender: FDA-Public Use
  Company Number: NZ-ABBVIE-15K-118-1502269-00

PATIENT
  Age: 51 Year
  Sex: Female

DRUGS (4)
  1. HUMIRA [Suspect]
     Active Substance: ADALIMUMAB
     Route: 058
  2. WARFARIN [Concomitant]
     Active Substance: WARFARIN
     Indication: PRODUCT USED FOR UNKNOWN INDICATION
  3. HUMIRA [Suspect]
     Active Substance: ADALIMUMAB
     Indication: PSORIATIC ARTHROPATHY
     Route: 058
  4. METHOTREXATE. [Concomitant]
     Active Substance: METHOTREXATE
     Indication: PRODUCT USED FOR UNKNOWN INDICATION

REACTIONS (17)
  - Pain [Unknown]
  - Cough [Recovering/Resolving]
  - Pyrexia [Unknown]
  - C-reactive protein abnormal [Unknown]
  - Blood test abnormal [Unknown]
  - Chest discomfort [Recovering/Resolving]
  - Parvovirus infection [Recovering/Resolving]
  - Lethargy [Recovering/Resolving]
  - Fatigue [Unknown]
  - Injection site bruising [Unknown]
  - Malaise [Recovering/Resolving]
  - Pain [Unknown]
  - Injection site pain [Unknown]
  - Injection site haemorrhage [Unknown]
  - Arthropathy [Unknown]
  - Rash macular [Unknown]
  - Pain in extremity [Unknown]

NARRATIVE: CASE EVENT DATE: 2015
